FAERS Safety Report 21407521 (Version 5)
Quarter: 2023Q4

REPORT INFORMATION
  Report Type: Report from Study
  Country: US (occurrence: US)
  Receive Date: 20221004
  Receipt Date: 20231214
  Transmission Date: 20240110
  Serious: Yes (Hospitalization, Other)
  Sender: FDA-Public Use
  Company Number: US-ARGENX-2022-ARGX-US001978

PATIENT

DRUGS (2)
  1. VYVGART [Suspect]
     Active Substance: EFGARTIGIMOD ALFA-FCAB
     Indication: Product used for unknown indication
     Dosage: 10 MG/KG
     Route: 042
  2. VYVGART [Suspect]
     Active Substance: EFGARTIGIMOD ALFA-FCAB
     Dosage: UNK, 3RD CYCLE
     Dates: start: 20230324

REACTIONS (6)
  - Cerebrovascular accident [Unknown]
  - Unevaluable event [Unknown]
  - Drug effect less than expected [Unknown]
  - Therapy cessation [Unknown]
  - Dizziness [Unknown]
  - Fatigue [Unknown]
